FAERS Safety Report 13672593 (Version 1)
Quarter: 2017Q2

REPORT INFORMATION
  Report Type: Spontaneous
  Country: BE (occurrence: BE)
  Receive Date: 20170621
  Receipt Date: 20170621
  Transmission Date: 20170830
  Serious: Yes (Other)
  Sender: FDA-Public Use
  Company Number: BE-GLAXOSMITHKLINE-BE2017GSK094277

PATIENT
  Age: 56 Year
  Sex: Male

DRUGS (3)
  1. COVERAM [Concomitant]
     Active Substance: AMLODIPINE\PERINDOPRIL
  2. LAMISIL [Suspect]
     Active Substance: TERBINAFINE HYDROCHLORIDE
     Indication: TINEA PEDIS
  3. NEXIAM [Concomitant]
     Active Substance: ESOMEPRAZOLE

REACTIONS (8)
  - Feeling cold [Unknown]
  - Chromaturia [Not Recovered/Not Resolved]
  - Eye colour change [Not Recovered/Not Resolved]
  - Liver disorder [Unknown]
  - Feeling hot [Unknown]
  - Malaise [Unknown]
  - Blood test abnormal [Unknown]
  - Abdominal pain upper [Recovered/Resolved]

NARRATIVE: CASE EVENT DATE: 20170601
